FAERS Safety Report 7932679-1 (Version None)
Quarter: 2011Q4

REPORT INFORMATION
  Report Type: 
  Country: None (occurrence: None)
  Receive Date: 20111122
  Receipt Date: 20111115
  Transmission Date: 20120403
  Serious: Yes (Hospitalization)
  Sender: FDA-Public Use
  Company Number: US-JNJFOC-20111103023

PATIENT
  Sex: Male
  Weight: 38.8 kg

DRUGS (12)
  1. ANTIBIOTICS [Concomitant]
     Indication: INFLAMMATORY BOWEL DISEASE
  2. MULTI-VITAMINS [Concomitant]
  3. HUMIRA [Concomitant]
     Dates: start: 20110208, end: 20111018
  4. PROBIOTICS [Concomitant]
  5. INFLIXIMAB, RECOMBINANT [Suspect]
     Indication: INFLAMMATORY BOWEL DISEASE
     Route: 042
     Dates: start: 20080217
  6. INFLIXIMAB, RECOMBINANT [Suspect]
     Route: 042
     Dates: start: 20090512
  7. PREDNISONE TAB [Concomitant]
  8. BALSALAZIDE DISODIUM [Concomitant]
  9. MERCAPTOPURINE [Concomitant]
  10. FOLIC ACID [Concomitant]
  11. CALCIUM CARBONATE [Concomitant]
  12. FERROUS SULFATE TAB [Concomitant]

REACTIONS (2)
  - INFLAMMATORY BOWEL DISEASE [None]
  - CONDITION AGGRAVATED [None]
